FAERS Safety Report 6174076-8 (Version None)
Quarter: 2009Q2

REPORT INFORMATION
  Report Type: 
  Country: None (occurrence: None)
  Receive Date: 20090430
  Receipt Date: 20080226
  Transmission Date: 20091009
  Serious: No
  Sender: FDA-Public Use
  Company Number: US-ASTRAZENECA-2008UW05012

PATIENT
  Age: 28 Year
  Sex: Male
  Weight: 78 kg

DRUGS (1)
  1. NEXIUM [Suspect]
     Route: 048
     Dates: start: 20070101, end: 20070101

REACTIONS (1)
  - ARTHRITIS [None]
